FAERS Safety Report 8112765-6 (Version None)
Quarter: 2012Q1

REPORT INFORMATION
  Report Type: 
  Country: None (occurrence: None)
  Receive Date: 20120203
  Receipt Date: 20120127
  Transmission Date: 20120608
  Serious: Yes (Hospitalization, Other)
  Sender: FDA-Public Use
  Company Number: US-AMGEN-USASP2012005894

PATIENT

DRUGS (3)
  1. ENBREL [Suspect]
     Indication: PRODUCT USED FOR UNKNOWN INDICATION
     Dosage: UNK
  2. HUMIRA [Concomitant]
     Dosage: 40 MG, UNK
  3. VICODIN [Concomitant]
     Indication: INSOMNIA
     Dosage: UNK

REACTIONS (3)
  - ANAEMIA [None]
  - BONE MARROW DISORDER [None]
  - LYMPHOMA [None]
